FAERS Safety Report 6775236-5 (Version None)
Quarter: 2010Q2

REPORT INFORMATION
  Report Type: 
  Country: None (occurrence: None)
  Receive Date: 20100617
  Receipt Date: 20100610
  Transmission Date: 20101027
  Serious: Yes (Hospitalization, Other)
  Sender: FDA-Public Use
  Company Number: AU-JNJFOC-20100603762

PATIENT
  Sex: Female

DRUGS (2)
  1. DURAGESIC-100 [Suspect]
     Indication: BACK PAIN
     Route: 065
  2. DURAGESIC-100 [Suspect]
     Route: 065

REACTIONS (7)
  - BRAIN INJURY [None]
  - COGNITIVE DISORDER [None]
  - DIABETES MELLITUS [None]
  - PANCREATIC DISORDER [None]
  - PERICARDIAL EFFUSION [None]
  - READING DISORDER [None]
  - WITHDRAWAL SYNDROME [None]
